FAERS Safety Report 10460090 (Version 5)
Quarter: 2015Q1

REPORT INFORMATION
  Report Type: Report from Study
  Country: US (occurrence: US)
  Receive Date: 20140917
  Receipt Date: 20150128
  Transmission Date: 20150720
  Serious: Yes (Hospitalization, Other)
  Sender: FDA-Public Use
  Company Number: US-BAYER-2014-128620

PATIENT
  Age: 45 Year
  Sex: Female

DRUGS (3)
  1. AMITRIPTYLINE [Interacting]
     Active Substance: AMITRIPTYLINE
  2. NEXAVAR [Suspect]
     Active Substance: SORAFENIB
     Indication: FIBROMATOSIS
     Dosage: 400 MG, BID
     Route: 048
     Dates: start: 20140805, end: 20140829
  3. NEXAVAR [Interacting]
     Active Substance: SORAFENIB
     Indication: SOFT TISSUE SARCOMA
     Dosage: 4 X 200 MG
     Route: 048

REACTIONS (12)
  - Drug dose omission [None]
  - Abdominal pain upper [None]
  - Weight decreased [None]
  - Drug interaction [None]
  - Product use issue [None]
  - Pain [None]
  - Retching [None]
  - Diarrhoea [Not Recovered/Not Resolved]
  - Neuropathy peripheral [None]
  - Myalgia [Recovering/Resolving]
  - Viral infection [None]
  - Pain in extremity [None]

NARRATIVE: CASE EVENT DATE: 20140825
